FAERS Safety Report 8212652-9 (Version None)
Quarter: 2012Q1

REPORT INFORMATION
  Report Type: 
  Country: None (occurrence: None)
  Receive Date: 20120315
  Receipt Date: 20120312
  Transmission Date: 20120608
  Serious: Yes (Hospitalization)
  Sender: FDA-Public Use
  Company Number: US-BAYER-2012-024870

PATIENT
  Age: 64 Year
  Sex: Male

DRUGS (9)
  1. GLIPIZIDE [Suspect]
     Indication: TYPE 2 DIABETES MELLITUS
     Dosage: 5 MG, UNK
  2. BETA BLOCKING AGENTS [Concomitant]
  3. PLATELET AGGREGATION INHIBITORS [Concomitant]
     Route: 048
  4. ACE INHIBITOR NOS [Concomitant]
  5. CHOLESTEROL- AND TRIGLYCERIDE REDUCERS [Concomitant]
  6. ALDOSTERONE ANTAGONISTS [Concomitant]
  7. WARFARIN SODIUM [Suspect]
  8. SAXAGLIPTIN OR PLACEBO [Suspect]
     Indication: TYPE 2 DIABETES MELLITUS
     Dosage: UNK
     Dates: start: 20110808
  9. ASPIRIN [Suspect]

REACTIONS (4)
  - PAIN IN EXTREMITY [None]
  - HEADACHE [None]
  - NON-CARDIAC CHEST PAIN [None]
  - SUBARACHNOID HAEMORRHAGE [None]
